FAERS Safety Report 6207800-6 (Version None)
Quarter: 2009Q2

REPORT INFORMATION
  Report Type: 
  Country: None (occurrence: None)
  Receive Date: 20090522
  Receipt Date: 20090518
  Transmission Date: 20091009
  Serious: Yes (Death)
  Sender: FDA-Public Use
  Company Number: 2009JP001965

PATIENT
  Age: 64 Year
  Sex: Male
  Weight: 79 kg

DRUGS (16)
  1. TACROLIMUS [Suspect]
     Indication: INTERSTITIAL LUNG DISEASE
     Dosage: 6 MG, /D, ORAL ; 3 MG, /D, ORAL ; 4 MG, /D, ORAL
     Route: 048
     Dates: end: 20090128
  2. TACROLIMUS [Suspect]
     Indication: INTERSTITIAL LUNG DISEASE
     Dosage: 6 MG, /D, ORAL ; 3 MG, /D, ORAL ; 4 MG, /D, ORAL
     Route: 048
     Dates: start: 20090129, end: 20090402
  3. TACROLIMUS [Suspect]
     Indication: INTERSTITIAL LUNG DISEASE
     Dosage: 6 MG, /D, ORAL ; 3 MG, /D, ORAL ; 4 MG, /D, ORAL
     Route: 048
     Dates: start: 20081208
  4. PREDNISOLONE [Concomitant]
  5. URALYT (POTASSIUM CITRATE) [Concomitant]
  6. CANDESARTAN CILEXETIL [Concomitant]
  7. EPADEL-S (ETHYL ICOSAPENTATE) [Concomitant]
  8. BAYASPIRIN ENTERIC TABLET [Concomitant]
  9. URINORM (BENZBROMARONE) [Concomitant]
  10. ALFAROL (ALFACALCIDOL) [Concomitant]
  11. LANSOPRAZOLE [Concomitant]
  12. ASPARA-CA (ASPARTATE CALCIUM) [Concomitant]
  13. SULFAMETHOXAZOLE AND TRIMETHOPRIM [Concomitant]
  14. ANTEBATE (BETAMETHASONE BUTYRATE PROPIONATE) [Concomitant]
  15. KERATINAMIN (UREA) [Concomitant]
  16. FULMETA (MOMETASONE FUROATE) [Concomitant]

REACTIONS (11)
  - BLOOD CULTURE POSITIVE [None]
  - BLOOD PH INCREASED [None]
  - BLOOD PRESSURE DECREASED [None]
  - BODY TEMPERATURE DECREASED [None]
  - CONDITION AGGRAVATED [None]
  - ELECTROMECHANICAL DISSOCIATION [None]
  - HEART RATE DECREASED [None]
  - INTERSTITIAL LUNG DISEASE [None]
  - PLATELET COUNT DECREASED [None]
  - RENAL IMPAIRMENT [None]
  - RESPIRATORY FAILURE [None]
